FAERS Safety Report 6231257-2 (Version None)
Quarter: 2009Q2

REPORT INFORMATION
  Report Type: 
  Country: None (occurrence: None)
  Receive Date: 20090616
  Receipt Date: 20090604
  Transmission Date: 20091009
  Serious: Yes (Hospitalization)
  Sender: FDA-Public Use
  Company Number: US-ELI_LILLY_AND_COMPANY-US200906001120

PATIENT
  Sex: Female

DRUGS (8)
  1. FORTEO [Suspect]
     Indication: OSTEOPOROSIS
     Dosage: UNK, EACH EVENING
     Dates: start: 20090430, end: 20090531
  2. MINERAL TAB [Concomitant]
  3. VITAMINS NOS [Concomitant]
  4. MINERALS NOS [Concomitant]
  5. CALCIUM                                 /N/A/ [Concomitant]
  6. MAGNESIUM SULFATE [Concomitant]
  7. METOPROLOL SUCCINATE [Concomitant]
     Indication: MITRAL VALVE PROLAPSE
  8. ZYRTEC [Concomitant]
     Indication: SINUS DISORDER
     Dosage: UNK, AS NEEDED

REACTIONS (6)
  - BLOOD PRESSURE FLUCTUATION [None]
  - CHEST PAIN [None]
  - DIZZINESS [None]
  - LOSS OF CONSCIOUSNESS [None]
  - NECK PAIN [None]
  - PAIN IN EXTREMITY [None]
